FAERS Safety Report 10438731 (Version 1)
Quarter: 2014Q3

REPORT INFORMATION
  Report Type: Spontaneous
  Country: US (occurrence: US)
  Receive Date: 20140908
  Receipt Date: 20140908
  Transmission Date: 20150326
  Serious: No
  Sender: FDA-Public Use
  Company Number: US-PFIZER INC-2014248142

PATIENT
  Age: 35 Year
  Sex: Male
  Weight: 88.44 kg

DRUGS (1)
  1. ALPRAZOLAM. [Suspect]
     Active Substance: ALPRAZOLAM
     Indication: ANXIETY
     Dosage: 2 MG, 3X/DAY

REACTIONS (4)
  - Product taste abnormal [Unknown]
  - Product shape issue [Unknown]
  - Product physical issue [Unknown]
  - Drug ineffective [Unknown]
